FAERS Safety Report 18031274 (Version 1)
Quarter: 2020Q3

REPORT INFORMATION
  Report Type: Spontaneous
  Country: US (occurrence: US)
  Receive Date: 20200715
  Receipt Date: 20200715
  Transmission Date: 20201103
  Serious: Yes (Death)
  Sender: FDA-Public Use
  Company Number: None

PATIENT
  Age: 55 Year
  Sex: Female

DRUGS (3)
  1. AMLODIPINE BESYLATE 10MG [Concomitant]
     Active Substance: AMLODIPINE BESYLATE
     Dates: start: 20191119
  2. TRIUMEQ [Suspect]
     Active Substance: ABACAVIR SULFATE\DOLUTEGRAVIR SODIUM\LAMIVUDINE
     Indication: HIV INFECTION
     Route: 048
     Dates: start: 20190301
  3. THRIVITE RX 29?1 [Concomitant]
     Active Substance: DIETARY SUPPLEMENT\FOLIC ACID\VITAMINS
     Dates: start: 20191119

REACTIONS (1)
  - Death [None]

NARRATIVE: CASE EVENT DATE: 20200715
